FAERS Safety Report 5774066-0 (Version None)
Quarter: 2008Q2

REPORT INFORMATION
  Report Type: 
  Country: None (occurrence: None)
  Receive Date: 20080616
  Receipt Date: 20080612
  Transmission Date: 20081010
  Serious: Yes (Death, Hospitalization)
  Sender: FDA-Public Use
  Company Number: GB-JNJFOC-20080404258

PATIENT
  Age: 59 Year
  Sex: Male

DRUGS (8)
  1. RISPERDAL [Suspect]
     Indication: PSYCHOTIC DISORDER
     Route: 048
  2. RISPERDAL [Suspect]
     Indication: LEARNING DISABILITY
     Route: 048
  3. PROCYCLIDINE HYDROCHLORIDE 2MG TAB [Concomitant]
     Route: 065
  4. PROCYCLIDINE HYDROCHLORIDE 2MG TAB [Concomitant]
     Route: 065
  5. PAROXETINE HCL [Concomitant]
     Route: 065
  6. ASPIRIN [Concomitant]
     Route: 065
  7. ATORVASTATIN [Concomitant]
     Indication: DRUG USE FOR UNKNOWN INDICATION
  8. LOVASTATIN [Concomitant]

REACTIONS (4)
  - CONFUSIONAL STATE [None]
  - CONVULSION [None]
  - DISORIENTATION [None]
  - PSYCHOMOTOR HYPERACTIVITY [None]
